FAERS Safety Report 10004017 (Version 2)
Quarter: 2014Q1

REPORT INFORMATION
  Report Type: Spontaneous
  Country: US (occurrence: US)
  Receive Date: 20140312
  Receipt Date: 20140312
  Transmission Date: 20141002
  Serious: No
  Sender: FDA-Public Use
  Company Number: US-INCYTE CORPORATION-2013IN003119

PATIENT
  Age: 59 Year
  Sex: Female
  Weight: 82.54 kg

DRUGS (6)
  1. JAKAFI [Suspect]
     Indication: MYELOFIBROSIS
     Dosage: 15 MG, BID
     Route: 048
     Dates: start: 20121230, end: 20140129
  2. METFORMIN [Concomitant]
  3. PROCARDIA                          /00340701/ [Concomitant]
  4. ALBUTEROL                          /00139501/ [Concomitant]
  5. ADALAT [Concomitant]
  6. PROTONIX [Concomitant]

REACTIONS (1)
  - Epistaxis [Recovered/Resolved]
